FAERS Safety Report 17491368 (Version 11)
Quarter: 2021Q2

REPORT INFORMATION
  Report Type: Report from Study
  Country: MX (occurrence: MX)
  Receive Date: 20200303
  Receipt Date: 20210611
  Transmission Date: 20210716
  Serious: Yes (Other)
  Sender: FDA-Public Use
  Company Number: MX-UCBSA-2020008026

PATIENT
  Age: 0 Year
  Sex: Male
  Weight: 3.4 kg

DRUGS (7)
  1. LACOSAMIDE. [Suspect]
     Active Substance: LACOSAMIDE
     Dosage: 100MG AT MORNING AND 200MG AT NIGHT
     Route: 063
     Dates: start: 202003
  2. LACOSAMIDE. [Suspect]
     Active Substance: LACOSAMIDE
     Indication: EPILEPSY
     Dosage: 100 MILLIGRAM, 2X/DAY (BID)
     Route: 064
     Dates: start: 20181102, end: 2019
  3. CARBAMAZEPINE. [Concomitant]
     Active Substance: CARBAMAZEPINE
     Indication: EPILEPSY
  4. NITROFURAZONE [Concomitant]
     Active Substance: NITROFURAZONE
     Indication: URINARY TRACT INFECTION
  5. PHENYTOIN. [Concomitant]
     Active Substance: PHENYTOIN
     Indication: PRODUCT USED FOR UNKNOWN INDICATION
  6. LEVOFLOXACIN. [Concomitant]
     Active Substance: LEVOFLOXACIN
     Indication: PHARYNGOTONSILLITIS
     Dosage: UNK
     Route: 063
     Dates: start: 202104
  7. LACOSAMIDE. [Suspect]
     Active Substance: LACOSAMIDE
     Dosage: 100 MILLIGRAM, 2X/DAY (BID)
     Route: 063
     Dates: start: 20181102

REACTIONS (6)
  - Candida infection [Unknown]
  - Pharyngotonsillitis [Unknown]
  - Maternal exposure before pregnancy [Unknown]
  - Exposure via breast milk [Unknown]
  - Maternal exposure during pregnancy [Unknown]
  - Pigmentation disorder [Unknown]

NARRATIVE: CASE EVENT DATE: 201901
